FAERS Safety Report 10668630 (Version 2)
Quarter: 2014Q4

REPORT INFORMATION
  Report Type: Report from Study
  Country: US (occurrence: US)
  Receive Date: 20141222
  Receipt Date: 20141222
  Transmission Date: 20150529
  Serious: Yes (Hospitalization)
  Sender: FDA-Public Use
  Company Number: US-SA-2014SA049931

PATIENT
  Age: 54 Year
  Sex: Female

DRUGS (2)
  1. AUBAGIO [Suspect]
     Active Substance: TERIFLUNOMIDE
     Indication: MULTIPLE SCLEROSIS
     Dosage: DOSE:7 MG AND 14 MG
     Route: 048
     Dates: end: 20141211
  2. AUBAGIO [Suspect]
     Active Substance: TERIFLUNOMIDE
     Indication: MULTIPLE SCLEROSIS
     Route: 048
     Dates: start: 20140411, end: 20140613

REACTIONS (11)
  - Multiple sclerosis relapse [Unknown]
  - Head injury [Unknown]
  - Somnolence [Unknown]
  - Hypoaesthesia [Not Recovered/Not Resolved]
  - Fall [Unknown]
  - Depression [Unknown]
  - Anxiety [Unknown]
  - Fatigue [Unknown]
  - Paraesthesia [Not Recovered/Not Resolved]
  - Rash [Unknown]
  - Limb discomfort [Unknown]

NARRATIVE: CASE EVENT DATE: 20140412
